FAERS Safety Report 8579701-X (Version None)
Quarter: 2012Q3

REPORT INFORMATION
  Report Type: 
  Country: None (occurrence: None)
  Receive Date: 20120808
  Receipt Date: 20120727
  Transmission Date: 20120928
  Serious: Yes (Other)
  Sender: FDA-Public Use
  Company Number: CA-UCBSA-062649

PATIENT
  Age: 64 Year
  Sex: Male
  Weight: 86.9 kg

DRUGS (10)
  1. VITAMIN E [Concomitant]
     Indication: VITAMIN SUPPLEMENTATION
     Dates: start: 20110901
  2. ASPIRIN [Concomitant]
     Dates: start: 20040701
  3. LACOSAMIDE [Suspect]
     Dosage: BID (DOSE NOT REPORTED)
     Route: 048
     Dates: start: 20120705
  4. CRESTOR [Concomitant]
     Indication: DYSLIPIDAEMIA
     Dates: start: 20070701
  5. COVERSYL PLUS [Concomitant]
     Indication: HYPERTENSION
     Dosage: 1.25/4 MG QD
     Dates: start: 20111201
  6. COCONUT OIL [Concomitant]
     Indication: SUPPLEMENTATION THERAPY
     Dates: start: 20120508
  7. KEPPRA [Concomitant]
     Indication: EPILEPSY
     Dates: start: 20120112
  8. KEPPRA [Concomitant]
     Dosage: QHS
     Dates: start: 20120112, end: 20120725
  9. ZYCLARA [Concomitant]
     Indication: ACTINIC KERATOSIS
     Dosage: 1 APP QD
     Route: 061
     Dates: start: 20120626, end: 20120709
  10. REMERON [Concomitant]
     Indication: PARKINSON'S DISEASE
     Dates: start: 20110729

REACTIONS (1)
  - LOSS OF CONSCIOUSNESS [None]
